FAERS Safety Report 25886246 (Version 1)
Quarter: 2025Q4

REPORT INFORMATION
  Report Type: Spontaneous
  Country: US (occurrence: US)
  Receive Date: 20251006
  Receipt Date: 20251006
  Transmission Date: 20260117
  Serious: No
  Sender: PFIZER
  Company Number: US-PFIZER INC-202500196465

PATIENT
  Age: 51 Year
  Sex: Female

DRUGS (1)
  1. IBRANCE [Suspect]
     Active Substance: PALBOCICLIB
     Indication: Breast cancer female
     Dosage: UNK
     Dates: start: 202509, end: 20250929

REACTIONS (6)
  - Drug hypersensitivity [Recovering/Resolving]
  - Illness [Recovering/Resolving]
  - Vomiting [Recovering/Resolving]
  - Nausea [Recovering/Resolving]
  - Oropharyngeal pain [Recovering/Resolving]
  - Candida infection [Unknown]

NARRATIVE: CASE EVENT DATE: 20250901
